FAERS Safety Report 18702069 (Version 1)
Quarter: 2021Q1

REPORT INFORMATION
  Report Type: Report from Study
  Country: US (occurrence: US)
  Receive Date: 20210105
  Receipt Date: 20210105
  Transmission Date: 20210419
  Serious: Yes (Death)
  Sender: FDA-Public Use
  Company Number: US-JNJFOC-20201245482

PATIENT
  Age: 78 Year
  Sex: Male

DRUGS (1)
  1. SELEXIPAG [Suspect]
     Active Substance: SELEXIPAG
     Indication: PULMONARY ARTERIAL HYPERTENSION
     Dosage: 400 MCG IN AM AND 200 MCG IN PM
     Route: 048
     Dates: start: 20170825, end: 20201221

REACTIONS (1)
  - Death [Fatal]
